FAERS Safety Report 10959833 (Version 1)
Quarter: 2015Q1

REPORT INFORMATION
  Report Type: Spontaneous
  Country: US (occurrence: US)
  Receive Date: 20150327
  Receipt Date: 20150327
  Transmission Date: 20150721
  Serious: Yes (Death)
  Sender: FDA-Public Use
  Company Number: US-CIPLA LTD.-2015US02334

PATIENT

DRUGS (9)
  1. PRAMIPEXOLE [Suspect]
     Active Substance: PRAMIPEXOLE
  2. OMEPRAZOLE. [Suspect]
     Active Substance: OMEPRAZOLE
  3. CARVEDILOL. [Suspect]
     Active Substance: CARVEDILOL
  4. AMLODIPINE [Suspect]
     Active Substance: AMLODIPINE BESYLATE
  5. CITALOPRAM [Suspect]
     Active Substance: CITALOPRAM HYDROBROMIDE
  6. RISPERIDONE. [Suspect]
     Active Substance: RISPERIDONE
  7. PRAVASTATIN [Suspect]
     Active Substance: PRAVASTATIN\PRAVASTATIN SODIUM
  8. TOPIRAMATE. [Suspect]
     Active Substance: TOPIRAMATE
  9. LEVOTHYROXINE [Suspect]
     Active Substance: LEVOTHYROXINE

REACTIONS (1)
  - Completed suicide [Fatal]
